FAERS Safety Report 9311836 (Version 1)
Quarter: 2013Q2

REPORT INFORMATION
  Report Type: Spontaneous
  Country: NL (occurrence: NL)
  Receive Date: 20130528
  Receipt Date: 20130528
  Transmission Date: 20140414
  Serious: Yes (Life-Threatening, Hospitalization)
  Sender: FDA-Public Use
  Company Number: PHHY2013NL052838

PATIENT
  Sex: Female

DRUGS (1)
  1. CEFTRIAXONE [Suspect]
     Indication: LYME DISEASE

REACTIONS (3)
  - Hepatitis [Recovering/Resolving]
  - Acute respiratory distress syndrome [Unknown]
  - Haemolytic anaemia [Recovered/Resolved with Sequelae]
